FAERS Safety Report 9251706 (Version 1)
Quarter: 2013Q2

REPORT INFORMATION
  Report Type: Report from Study
  Country: DE (occurrence: DE)
  Receive Date: 20130424
  Receipt Date: 20130424
  Transmission Date: 20140414
  Serious: Yes (Other)
  Sender: FDA-Public Use
  Company Number: PHHY2013DE038356

PATIENT
  Sex: Female

DRUGS (1)
  1. SIGNIFOR [Suspect]
     Indication: CUSHING^S SYNDROME

REACTIONS (2)
  - Diabetes mellitus [Unknown]
  - Weight decreased [Unknown]
